FAERS Safety Report 9319506 (Version 1)
Quarter: 2013Q2

REPORT INFORMATION
  Report Type: Spontaneous
  Country: US (occurrence: US)
  Receive Date: 20130530
  Receipt Date: 20130530
  Transmission Date: 20140414
  Serious: No
  Sender: FDA-Public Use
  Company Number: US-GLAXOSMITHKLINE-A0993164A

PATIENT
  Age: 46 Year
  Sex: Female

DRUGS (1)
  1. FLOLAN [Suspect]
     Indication: PRODUCT USED FOR UNKNOWN INDICATION
     Dosage: 40NGKM CONTINUOUS
     Dates: start: 20120406

REACTIONS (3)
  - Palpitations [Unknown]
  - Pain in jaw [Unknown]
  - Oedema [Unknown]
